FAERS Safety Report 5622491-0 (Version None)
Quarter: 2008Q1

REPORT INFORMATION
  Report Type: 
  Country: None (occurrence: None)
  Receive Date: 20080211
  Receipt Date: 20080130
  Transmission Date: 20080703
  Serious: Yes (Other)
  Sender: FDA-Public Use
  Company Number: GB-PFIZER INC-2008010584

PATIENT
  Sex: Male

DRUGS (1)
  1. CHANTIX [Suspect]
     Indication: SMOKING CESSATION THERAPY
     Route: 048

REACTIONS (5)
  - ARTHRALGIA [None]
  - ARTHROPATHY [None]
  - GINGIVAL RECESSION [None]
  - MYALGIA [None]
  - TOOTH DISORDER [None]
